FAERS Safety Report 15501056 (Version 1)
Quarter: 2018Q4

REPORT INFORMATION
  Report Type: Spontaneous
  Country: US (occurrence: US)
  Receive Date: 20181015
  Receipt Date: 20181015
  Transmission Date: 20190205
  Serious: Yes (Hospitalization, Other)
  Sender: FDA-Public Use
  Company Number: US-PFIZER INC-2018417562

PATIENT
  Age: 49 Year
  Sex: Female

DRUGS (4)
  1. DEXMEDETOMIDINE. [Concomitant]
     Active Substance: DEXMEDETOMIDINE
     Dosage: UNK
  2. CISATRACURIUM. [Concomitant]
     Active Substance: CISATRACURIUM
  3. AMIODARONE HCL [Suspect]
     Active Substance: AMIODARONE HYDROCHLORIDE
     Indication: VENTRICULAR FIBRILLATION
     Dosage: UNK
     Route: 065
  4. FENTANYL CITRATE. [Suspect]
     Active Substance: FENTANYL CITRATE
     Dosage: UNK
     Route: 065

REACTIONS (24)
  - Ejection fraction decreased [Recovering/Resolving]
  - Dysphonia [Unknown]
  - Myotonic dystrophy [Unknown]
  - Cardiomyopathy [Unknown]
  - Ventricular tachycardia [Unknown]
  - Pneumonia [Unknown]
  - Hypoxic-ischaemic encephalopathy [Unknown]
  - Myotonia [Unknown]
  - Hypopnoea [Unknown]
  - Ventricular hypokinesia [Unknown]
  - Dilatation ventricular [Unknown]
  - Asthenia [Unknown]
  - Cardiac arrest [Unknown]
  - Metabolic acidosis [Recovering/Resolving]
  - Paralysis [Unknown]
  - Osmotic demyelination syndrome [Unknown]
  - Facial wasting [Unknown]
  - Pyrexia [Unknown]
  - Cough [Unknown]
  - Cardiogenic shock [Unknown]
  - Eyelid ptosis [Unknown]
  - Lagophthalmos [Unknown]
  - Hypokinesia [Unknown]
  - Status epilepticus [Unknown]
